FAERS Safety Report 4703757-5 (Version None)
Quarter: 2005Q2

REPORT INFORMATION
  Report Type: 
  Country: None (occurrence: None)
  Receive Date: 20050628
  Receipt Date: 20050620
  Transmission Date: 20051028
  Serious: Yes (Other)
  Sender: FDA-Public Use
  Company Number: 2005064156

PATIENT
  Sex: Female
  Weight: 46.7205 kg

DRUGS (12)
  1. NORVASC [Suspect]
     Indication: HYPERTENSION
     Dosage: ORAL
     Route: 048
     Dates: start: 20000101
  2. LIPITOR [Suspect]
     Indication: BLOOD CHOLESTEROL INCREASED
     Dosage: ORAL
     Route: 048
     Dates: start: 20040101
  3. SPIRONOLACTONE [Suspect]
     Indication: SWELLING
     Dosage: 100 MG (100 MG, 1 IN 1 D), ORAL
     Route: 048
     Dates: start: 19850101
  4. MORPHINE [Concomitant]
  5. THEOPHYLLINE [Concomitant]
  6. DRUG, UNSPECIFIED (DRUG UNSPECIFIED) [Concomitant]
  7. FLUTICASONE PROPIONATE [Concomitant]
  8. SERETIDE MITE (FLUTICASONE PROPIONATE, SALMETEROL XINAFOATE) [Concomitant]
  9. FUROSEMIDE [Concomitant]
  10. ALLERGY MEDICATION (ALLERGY MEDICATION) [Concomitant]
  11. SINGLET ^DOW^ (CHLORPHENAMINE MALEATE, PARACETAMOL, PHENYLEPHIRINE HYD [Concomitant]
  12. LANSOPRAZOLE [Concomitant]

REACTIONS (14)
  - ARTHRITIS [None]
  - BLOOD CHOLESTEROL INCREASED [None]
  - BODY HEIGHT DECREASED [None]
  - DISEASE RECURRENCE [None]
  - HOT FLUSH [None]
  - HYPERTENSION [None]
  - LOWER LIMB FRACTURE [None]
  - MYOCARDIAL INFARCTION [None]
  - OSTEOPOROSIS [None]
  - RECTAL PROLAPSE [None]
  - SPINAL FRACTURE [None]
  - ULCER HAEMORRHAGE [None]
  - URINARY INCONTINENCE [None]
  - UTERINE CANCER [None]
